FAERS Safety Report 20444190 (Version 1)
Quarter: 2022Q1

REPORT INFORMATION
  Report Type: Spontaneous
  Country: US (occurrence: US)
  Receive Date: 20220208
  Receipt Date: 20220208
  Transmission Date: 20220423
  Serious: No
  Sender: FDA-Public Use
  Company Number: US-SANOFI-00958945

PATIENT
  Sex: Female

DRUGS (6)
  1. ALLEGRA ALLERGY [Suspect]
     Active Substance: FEXOFENADINE HYDROCHLORIDE
     Dosage: 1 DF, BID, 180 MG TABLET IN THE MORNING AND 1 IN THE EVENING.
     Route: 048
  2. XYZAL ALLERGY 24HR [Concomitant]
     Active Substance: LEVOCETIRIZINE DIHYDROCHLORIDE
  3. XYZAL ALLERGY 24HR [Concomitant]
     Active Substance: LEVOCETIRIZINE DIHYDROCHLORIDE
  4. IVERMECTIN [Concomitant]
     Active Substance: IVERMECTIN
  5. DUPIXENT [Concomitant]
     Active Substance: DUPILUMAB
  6. XYZAL [Concomitant]
     Active Substance: LEVOCETIRIZINE DIHYDROCHLORIDE

REACTIONS (2)
  - Pruritus [Unknown]
  - Rash pruritic [Unknown]
